FAERS Safety Report 21416237 (Version 2)
Quarter: 2022Q4

REPORT INFORMATION
  Report Type: Spontaneous
  Country: US (occurrence: US)
  Receive Date: 20221006
  Receipt Date: 20221019
  Transmission Date: 20230113
  Serious: Yes (Hospitalization, Other)
  Sender: FDA-Public Use
  Company Number: US-TEVA-2022-US-2078703

PATIENT
  Age: 79 Year
  Sex: Male

DRUGS (8)
  1. FLUOROURACIL [Suspect]
     Active Substance: FLUOROURACIL
     Indication: Prostate cancer stage III
     Dosage: TWO CYCLES; 1000 MG/M2/DAY ON DAYS 1-4 AND 29-32
     Route: 065
  2. FLUOROURACIL [Suspect]
     Active Substance: FLUOROURACIL
     Indication: Anal squamous cell carcinoma
  3. MITOMYCIN C [Suspect]
     Active Substance: MITOMYCIN
     Indication: Prostate cancer stage III
     Dosage: TWO CYCLES; 10 MG/M2 ON DAYS 1 AND 29.
     Route: 065
  4. MITOMYCIN C [Suspect]
     Active Substance: MITOMYCIN
     Indication: Anal squamous cell carcinoma
  5. BICALUTAMIDE [Concomitant]
     Active Substance: BICALUTAMIDE
     Indication: Prostate cancer stage III
     Route: 065
  6. BICALUTAMIDE [Concomitant]
     Active Substance: BICALUTAMIDE
     Indication: Anal squamous cell carcinoma
  7. LEUPROLIDE ACETATE [Concomitant]
     Active Substance: LEUPROLIDE ACETATE
     Indication: Prostate cancer stage III
     Route: 065
  8. LEUPROLIDE ACETATE [Concomitant]
     Active Substance: LEUPROLIDE ACETATE
     Indication: Anal squamous cell carcinoma

REACTIONS (6)
  - Dehydration [Unknown]
  - Neutropenia [Unknown]
  - Diarrhoea [Unknown]
  - Pollakiuria [Unknown]
  - Fatigue [Unknown]
  - Weight decreased [Unknown]
